FAERS Safety Report 9940537 (Version 1)
Quarter: 2014Q1

REPORT INFORMATION
  Report Type: Spontaneous
  Country: JP (occurrence: JP)
  Receive Date: 20140303
  Receipt Date: 20140303
  Transmission Date: 20141002
  Serious: Yes (Life-Threatening, Disabling)
  Sender: FDA-Public Use
  Company Number: JP-ASTRAZENECA-2014SE13996

PATIENT
  Sex: 0

DRUGS (1)
  1. ANAPEINE [Suspect]
     Indication: EPIDURAL ANAESTHESIA
     Dosage: 7.5 MG/DL 10 ML, UNKNOWN FREQUENCY.
     Route: 042

REACTIONS (2)
  - Cardiac arrest [Recovered/Resolved with Sequelae]
  - Incorrect route of drug administration [Unknown]
